FAERS Safety Report 17880284 (Version 2)
Quarter: 2020Q2

REPORT INFORMATION
  Report Type: Report from Study
  Country: US (occurrence: US)
  Receive Date: 20200610
  Receipt Date: 20200616
  Transmission Date: 20200714
  Serious: Yes (Other)
  Sender: FDA-Public Use
  Company Number: US-ELI_LILLY_AND_COMPANY-US202006000165

PATIENT
  Age: 33 Year
  Sex: Male

DRUGS (3)
  1. LORAZEPAM. [Concomitant]
     Active Substance: LORAZEPAM
     Dosage: 1 MG, UNKNOWN
     Route: 065
  2. OLANZAPINE PAMOATE [Suspect]
     Active Substance: OLANZAPINE PAMOATE
     Dosage: 405 MG, MONTHLY (1/M)
     Route: 030
     Dates: start: 20200302
  3. OLANZAPINE PAMOATE [Suspect]
     Active Substance: OLANZAPINE PAMOATE
     Indication: SCHIZOAFFECTIVE DISORDER
     Dosage: 300 MG, EVERY 2 WEEKS
     Route: 030
     Dates: start: 20181009, end: 20200128

REACTIONS (3)
  - Somnolence [Recovered/Resolved]
  - Sedation [Recovered/Resolved]
  - Post-injection delirium sedation syndrome [Recovered/Resolved]

NARRATIVE: CASE EVENT DATE: 20200527
